FAERS Safety Report 5813182-1 (Version None)
Quarter: 2008Q3

REPORT INFORMATION
  Report Type: 
  Country: None (occurrence: None)
  Receive Date: 20080717
  Receipt Date: 20080326
  Transmission Date: 20090109
  Serious: No
  Sender: FDA-Public Use
  Company Number: A0717555A

PATIENT
  Age: 28 Year

DRUGS (2)
  1. NICORETTE (MINT) [Suspect]
  2. PROTONIX [Concomitant]

REACTIONS (3)
  - DYSPEPSIA [None]
  - OROPHARYNGEAL BLISTERING [None]
  - THROAT IRRITATION [None]
